FAERS Safety Report 4943351-4 (Version None)
Quarter: 2006Q1

REPORT INFORMATION
  Report Type: 
  Country: None (occurrence: None)
  Receive Date: 20060314
  Receipt Date: 20051221
  Transmission Date: 20060701
  Serious: Yes (Hospitalization)
  Sender: FDA-Public Use
  Company Number: GB-BRISTOL-MYERS SQUIBB COMPANY-13312038

PATIENT
  Age: 50 Year
  Sex: Female

DRUGS (5)
  1. MOLIPAXIN TABS [Suspect]
     Route: 048
  2. CYCLIZINE [Concomitant]
     Indication: NAUSEA
     Dates: start: 20051209, end: 20051215
  3. ACETAMINOPHEN [Concomitant]
     Indication: PAIN
     Dates: start: 20051209, end: 20051215
  4. ZOPICLONE [Concomitant]
     Indication: INSOMNIA
     Dates: start: 20051209, end: 20051215
  5. DIAZEPAM [Concomitant]
     Indication: ANXIETY
     Dates: start: 20051209, end: 20051215

REACTIONS (1)
  - LOWER RESPIRATORY TRACT INFECTION [None]
